FAERS Safety Report 6453832-2 (Version None)
Quarter: 2009Q4

REPORT INFORMATION
  Report Type: 
  Country: None (occurrence: None)
  Receive Date: 20091123
  Receipt Date: 20091123
  Transmission Date: 20100525
  Serious: Yes (Other)
  Sender: FDA-Public Use
  Company Number: None

PATIENT
  Age: 33 Year
  Sex: Female
  Weight: 47.6277 kg

DRUGS (1)
  1. 6-MERCAPTOPURINE  6MP 5MG [Suspect]
     Indication: CROHN'S DISEASE
     Dosage: 5 MG ONE PER DAY PO
     Route: 048
     Dates: start: 20090929, end: 20091001

REACTIONS (2)
  - ABASIA [None]
  - PAIN IN EXTREMITY [None]
